FAERS Safety Report 13771186 (Version 1)
Quarter: 2017Q3

REPORT INFORMATION
  Report Type: Spontaneous
  Country: US (occurrence: US)
  Receive Date: 20170720
  Receipt Date: 20170720
  Transmission Date: 20171127
  Serious: Yes (Hospitalization)
  Sender: FDA-Public Use
  Company Number: None

PATIENT
  Age: 23 Year
  Sex: Female
  Weight: 68.85 kg

DRUGS (1)
  1. CLOZAPINE. [Suspect]
     Active Substance: CLOZAPINE
     Indication: SCHIZOPHRENIA
     Dosage: ?          OTHER DOSE:MG;?
     Route: 048
     Dates: start: 20170717, end: 20170719

REACTIONS (2)
  - Oropharyngeal pain [None]
  - Neutrophil count decreased [None]

NARRATIVE: CASE EVENT DATE: 20170719
